FAERS Safety Report 14109682 (Version 1)
Quarter: 2017Q4

REPORT INFORMATION
  Report Type: Spontaneous
  Country: FR (occurrence: FR)
  Receive Date: 20171020
  Receipt Date: 20171020
  Transmission Date: 20180321
  Serious: Yes (Hospitalization)
  Sender: FDA-Public Use
  Company Number: FR-ROCHE-2008221

PATIENT
  Age: 32 Year
  Sex: Female

DRUGS (12)
  1. ISONIAZID. [Concomitant]
     Active Substance: ISONIAZID
     Route: 065
     Dates: start: 20140411
  2. TRUVADA [Suspect]
     Active Substance: EMTRICITABINE\TENOFOVIR DISOPROXIL FUMARATE
     Indication: HIV INFECTION
     Dosage: 200 MG/ 245 MG
     Route: 048
     Dates: start: 20140603, end: 20140627
  3. PEGASYS [Suspect]
     Active Substance: PEGINTERFERON ALFA-2A
     Indication: VIRAL HEPATITIS CARRIER
     Route: 030
     Dates: start: 20140613, end: 20140620
  4. DEXAMBUTOL [Suspect]
     Active Substance: ETHAMBUTOL HYDROCHLORIDE
     Indication: PULMONARY TUBERCULOSIS
     Route: 048
     Dates: start: 20140506, end: 20140627
  5. ETHAMBUTOL [Concomitant]
     Active Substance: ETHAMBUTOL HYDROCHLORIDE
     Route: 065
     Dates: start: 20140411
  6. ISONIAZID. [Concomitant]
     Active Substance: ISONIAZID
     Route: 065
  7. RIFATER [Suspect]
     Active Substance: ISONIAZID\PYRAZINAMIDE\RIFAMPIN
     Indication: PULMONARY TUBERCULOSIS
     Route: 048
     Dates: start: 20140506, end: 20140627
  8. RIFAMPICIN [Concomitant]
     Active Substance: RIFAMPIN
     Route: 065
     Dates: start: 20140411
  9. ISENTRESS [Suspect]
     Active Substance: RALTEGRAVIR POTASSIUM
     Indication: HIV INFECTION
     Dosage: MORNING AND EVENING
     Route: 048
     Dates: start: 20140603, end: 20140627
  10. PYRAZINAMIDE. [Concomitant]
     Active Substance: PYRAZINAMIDE
     Route: 065
     Dates: start: 20140411
  11. RIFAMPICIN [Concomitant]
     Active Substance: RIFAMPIN
     Route: 065
     Dates: start: 20140723
  12. RIMIFON [Concomitant]
     Active Substance: ISONIAZID
     Route: 065
     Dates: start: 20140731

REACTIONS (1)
  - Drug reaction with eosinophilia and systemic symptoms [Recovered/Resolved]

NARRATIVE: CASE EVENT DATE: 20140623
